FAERS Safety Report 7272647-9 (Version None)
Quarter: 2011Q1

REPORT INFORMATION
  Report Type: 
  Country: None (occurrence: None)
  Receive Date: 20110203
  Receipt Date: 20110126
  Transmission Date: 20110831
  Serious: Yes (Disabling, Other)
  Sender: FDA-Public Use
  Company Number: EC-AMGEN-ECUSP2011005335

PATIENT
  Age: 62 Year
  Sex: Male

DRUGS (3)
  1. NEULASTIM [Suspect]
     Indication: NEUTROPENIA
     Dosage: 0.6 MG, Q3WK
     Dates: start: 20100201
  2. FLUOROURACIL [Concomitant]
     Dosage: UNK
     Route: 042
     Dates: start: 20100201
  3. OXALIPLATIN [Concomitant]
     Dosage: UNK
     Route: 042
     Dates: start: 20090901

REACTIONS (1)
  - BACK PAIN [None]
